FAERS Safety Report 8005411-3 (Version None)
Quarter: 2011Q4

REPORT INFORMATION
  Report Type: 
  Country: None (occurrence: None)
  Receive Date: 20111223
  Receipt Date: 20111221
  Transmission Date: 20120403
  Serious: Yes (Death)
  Sender: FDA-Public Use
  Company Number: SE-PURDUE-GBR-2011-0009272

PATIENT
  Sex: Male

DRUGS (2)
  1. LYRICA [Suspect]
     Indication: PAIN
     Dosage: 600 MG, UNK
     Route: 065
  2. OXYCONTIN [Suspect]
     Indication: PAIN
     Route: 048

REACTIONS (1)
  - POISONING [None]
